FAERS Safety Report 4382147-1 (Version None)
Quarter: 2004Q2

REPORT INFORMATION
  Report Type: 
  Country: None (occurrence: None)
  Receive Date: 20040617
  Receipt Date: 20040319
  Transmission Date: 20050107
  Serious: Yes (Hospitalization)
  Sender: FDA-Public Use
  Company Number: TAP2004Q00348

PATIENT
  Age: 7 Year
  Weight: 43.9989 kg

DRUGS (1)
  1. LUPRON DEPOT [Suspect]
     Indication: PRECOCIOUS PUBERTY
     Dosage: 7.5 MG, 1 IN 28 D, INTRAMUSCULAR
     Route: 030
     Dates: start: 20030818, end: 20040301

REACTIONS (5)
  - HYPERHIDROSIS [None]
  - INJECTION SITE ABSCESS [None]
  - INJECTION SITE MASS [None]
  - INJECTION SITE PAIN [None]
  - INJECTION SITE SWELLING [None]
